FAERS Safety Report 8255889-5 (Version None)
Quarter: 2012Q2

REPORT INFORMATION
  Report Type: 
  Country: None (occurrence: None)
  Receive Date: 20120403
  Receipt Date: 20120319
  Transmission Date: 20120825
  Serious: Yes (Death, Life-Threatening, Hospitalization, Other)
  Sender: FDA-Public Use
  Company Number: IT-ROCHE-1050413

PATIENT

DRUGS (5)
  1. CISPLATIN [Suspect]
     Indication: ADENOCARCINOMA PANCREAS
     Dosage: DAY 1 AND DAY 15
  2. DOCETAXEL [Suspect]
     Indication: ADENOCARCINOMA PANCREAS
     Dosage: 25 TO 30 MG/M2 DAY 1 AND 15
  3. GEMCITABINE HYDROCHLORIDE [Suspect]
     Indication: ADENOCARCINOMA PANCREAS
     Dosage: DAY 1 AND 15
  4. EPIRUBICIN HYDROCHLORIDE [Suspect]
     Indication: ADENOCARCINOMA PANCREAS
     Dosage: DAY 1 AND 15
  5. XELODA [Suspect]
     Indication: ADENOCARCINOMA PANCREAS
     Dosage: 1-28 WITHOUT A BREAK
     Route: 048

REACTIONS (17)
  - CEREBROVASCULAR ACCIDENT [None]
  - GRANULOCYTE COUNT DECREASED [None]
  - ANAEMIA [None]
  - INFECTION [None]
  - NAUSEA [None]
  - NEUTROPENIA [None]
  - FATIGUE [None]
  - DIARRHOEA [None]
  - PYREXIA [None]
  - ANGINA PECTORIS [None]
  - TRANSIENT ISCHAEMIC ATTACK [None]
  - VOMITING [None]
  - PALMAR-PLANTAR ERYTHRODYSAESTHESIA SYNDROME [None]
  - STOMATITIS [None]
  - PULMONARY EMBOLISM [None]
  - THROMBOCYTOPENIA [None]
  - FEBRILE NEUTROPENIA [None]
